FAERS Safety Report 7590794-9 (Version None)
Quarter: 2011Q3

REPORT INFORMATION
  Report Type: 
  Country: None (occurrence: None)
  Receive Date: 20110705
  Receipt Date: 20110628
  Transmission Date: 20111222
  Serious: Yes (Other)
  Sender: FDA-Public Use
  Company Number: US-PFIZER INC-2011117511

PATIENT
  Sex: Male

DRUGS (2)
  1. LYRICA [Suspect]
     Indication: BONE PAIN
     Dosage: 300 MG, (IN MORNING), 300 12 HRS LATER
  2. OXYCONTIN [Suspect]
     Indication: BONE PAIN
     Dosage: UNK

REACTIONS (6)
  - HEPATITIS C [None]
  - FIBROMYALGIA [None]
  - DRUG INEFFECTIVE [None]
  - OEDEMA PERIPHERAL [None]
  - BONE DISORDER [None]
  - NERVE INJURY [None]
